FAERS Safety Report 6125903-1 (Version None)
Quarter: 2009Q1

REPORT INFORMATION
  Report Type: 
  Country: None (occurrence: None)
  Receive Date: 20090320
  Receipt Date: 20090311
  Transmission Date: 20090719
  Serious: Yes (Hospitalization, Other)
  Sender: FDA-Public Use
  Company Number: US-PURDUE-USA_2009_0037359

PATIENT
  Age: 49 Year
  Sex: Male

DRUGS (1)
  1. DILAUDID [Suspect]
     Indication: PAIN
     Dosage: 4 MG, 5/DAY
     Route: 048

REACTIONS (14)
  - ARTHRODESIS [None]
  - CHOLECYSTECTOMY [None]
  - DIARRHOEA [None]
  - FEELING ABNORMAL [None]
  - HYPERHIDROSIS [None]
  - INADEQUATE ANALGESIA [None]
  - MALNUTRITION [None]
  - NEOPLASM SKIN [None]
  - PAIN [None]
  - PRODUCT QUALITY ISSUE [None]
  - RENAL CANCER [None]
  - SURGERY [None]
  - WEIGHT DECREASED [None]
  - WEIGHT INCREASED [None]
